FAERS Safety Report 7797876-7 (Version None)
Quarter: 2011Q4

REPORT INFORMATION
  Report Type: 
  Country: None (occurrence: None)
  Receive Date: 20111005
  Receipt Date: 20110928
  Transmission Date: 20120403
  Serious: Yes (Hospitalization, Disabling, Other)
  Sender: FDA-Public Use
  Company Number: US-MERCK-1105USA02547

PATIENT
  Age: 67 Year
  Sex: Female
  Weight: 55 kg

DRUGS (8)
  1. VITAMIN D (UNSPECIFIED) [Concomitant]
     Route: 065
     Dates: start: 19980101
  2. CALCIUM (UNSPECIFIED) [Concomitant]
     Route: 065
     Dates: start: 19980101
  3. FOSAMAX [Suspect]
     Indication: OSTEOPENIA
     Route: 048
     Dates: start: 19950101, end: 20090101
  4. LEVOTHYROXINE SODIUM [Concomitant]
     Indication: HYPOTHYROIDISM
     Route: 065
     Dates: start: 19840101
  5. OMEPRAZOLE [Concomitant]
     Indication: GASTROOESOPHAGEAL REFLUX DISEASE
     Route: 065
     Dates: start: 19950101
  6. FOSAMAX [Suspect]
     Indication: OSTEOPOROSIS
     Route: 048
     Dates: start: 19950101, end: 20090101
  7. ALENDRONATE SODIUM [Suspect]
     Route: 065
     Dates: start: 20020301
  8. EVISTA [Concomitant]
     Indication: OSTEOPOROSIS
     Route: 065
     Dates: start: 19950101

REACTIONS (49)
  - HIP FRACTURE [None]
  - CEREBROVASCULAR ACCIDENT [None]
  - BACK PAIN [None]
  - PYREXIA [None]
  - PERIPHERAL VASCULAR DISORDER [None]
  - OSTEOARTHRITIS [None]
  - CYSTOCELE [None]
  - SCIATICA [None]
  - MUSCULOSKELETAL CHEST PAIN [None]
  - PELVIC DEFORMITY [None]
  - URINARY TRACT INFECTION [None]
  - HYPONATRAEMIA [None]
  - BLOOD UREA INCREASED [None]
  - CEREBRAL ATROPHY [None]
  - ADVERSE DRUG REACTION [None]
  - HYPERTENSION [None]
  - RIB FRACTURE [None]
  - IMPAIRED HEALING [None]
  - TOOTH DISORDER [None]
  - CRANIOCEREBRAL INJURY [None]
  - BLOOD PRESSURE DECREASED [None]
  - BRADYCARDIA [None]
  - FALL [None]
  - HIATUS HERNIA [None]
  - LOSS OF CONSCIOUSNESS [None]
  - ORAL DISORDER [None]
  - UTERINE LEIOMYOMA [None]
  - MULTIPLE SCLEROSIS [None]
  - RENAL FAILURE CHRONIC [None]
  - HYPERLIPIDAEMIA [None]
  - HEARING IMPAIRED [None]
  - SPINAL OSTEOARTHRITIS [None]
  - BLOOD POTASSIUM DECREASED [None]
  - RADIUS FRACTURE [None]
  - WRIST FRACTURE [None]
  - ANXIETY [None]
  - SPINAL COLUMN STENOSIS [None]
  - LEUKOCYTOSIS [None]
  - LOW TURNOVER OSTEOPATHY [None]
  - SYNCOPE [None]
  - HAEMORRHAGE [None]
  - GAIT DISTURBANCE [None]
  - FRACTURE [None]
  - LUNG NEOPLASM [None]
  - INTERVERTEBRAL DISC PROTRUSION [None]
  - DEPRESSION [None]
  - LACERATION [None]
  - INCORRECT DOSE ADMINISTERED [None]
  - CHRONIC OBSTRUCTIVE PULMONARY DISEASE [None]
